FAERS Safety Report 5814191-9 (Version None)
Quarter: 2008Q3

REPORT INFORMATION
  Report Type: 
  Country: None (occurrence: None)
  Receive Date: 20080715
  Receipt Date: 20080708
  Transmission Date: 20090109
  Serious: Yes (Hospitalization)
  Sender: FDA-Public Use
  Company Number: CHPA2008US11242

PATIENT
  Age: 2 Year
  Sex: Male

DRUGS (1)
  1. DEXTROMETHORPHAN HYDROBROMIDE (NCH) (DEXTROMETHORPHAN HYDROBROMIDE) [Suspect]
     Indication: UPPER RESPIRATORY TRACT INFECTION

REACTIONS (8)
  - BLISTER [None]
  - DERMATITIS BULLOUS [None]
  - DIARRHOEA [None]
  - GENERALISED ERYTHEMA [None]
  - LETHARGY [None]
  - MASTOCYTOSIS [None]
  - URTICARIA [None]
  - VOMITING [None]
